FAERS Safety Report 8182816-1 (Version None)
Quarter: 2012Q1

REPORT INFORMATION
  Report Type: 
  Country: None (occurrence: None)
  Receive Date: 20120305
  Receipt Date: 20120227
  Transmission Date: 20120608
  Serious: Yes (Hospitalization, Other)
  Sender: FDA-Public Use
  Company Number: US-CELGENEUS-163-21880-12021633

PATIENT
  Sex: Female
  Weight: 54.48 kg

DRUGS (1)
  1. REVLIMID [Suspect]
     Indication: MULTIPLE MYELOMA
     Dosage: 10 MILLIGRAM
     Route: 048
     Dates: start: 20101209

REACTIONS (4)
  - INSOMNIA [None]
  - NOCTURIA [None]
  - ABDOMINAL PAIN [None]
  - ANEURYSM [None]
